FAERS Safety Report 5504357-X (Version None)
Quarter: 2007Q4

REPORT INFORMATION
  Report Type: 
  Country: None (occurrence: None)
  Receive Date: 20071101
  Receipt Date: 20071030
  Transmission Date: 20080405
  Serious: Yes (Other)
  Sender: FDA-Public Use
  Company Number: US-PFIZER INC-2007002869

PATIENT
  Sex: Female
  Weight: 135.6 kg

DRUGS (2)
  1. INHALED HUMAN INSULIN [Suspect]
     Indication: TYPE 2 DIABETES MELLITUS
     Route: 055
     Dates: start: 20061214, end: 20070105
  2. INHALED HUMAN INSULIN [Suspect]
     Route: 055

REACTIONS (2)
  - ARTHRALGIA [None]
  - CHEST PAIN [None]
